FAERS Safety Report 19486021 (Version 1)
Quarter: 2021Q3

REPORT INFORMATION
  Report Type: Spontaneous
  Country: US (occurrence: US)
  Receive Date: 20210702
  Receipt Date: 20210702
  Transmission Date: 20211014
  Serious: No
  Sender: FDA-Public Use
  Company Number: US-PFIZER INC-2021637991

PATIENT
  Age: 33 Year
  Sex: Female
  Weight: 96.62 kg

DRUGS (1)
  1. METHOTREXATE SODIUM. [Suspect]
     Active Substance: METHOTREXATE SODIUM
     Indication: RHEUMATOID ARTHRITIS
     Dosage: WEEKLY (UNKNOWN DOSAGE ORAL ONCE A WEEK)
     Dates: start: 2004

REACTIONS (1)
  - Upper respiratory tract infection [Recovered/Resolved]
